FAERS Safety Report 21899831 (Version 1)
Quarter: 2023Q1

REPORT INFORMATION
  Report Type: Spontaneous
  Country: US (occurrence: US)
  Receive Date: 20230123
  Receipt Date: 20230123
  Transmission Date: 20230418
  Serious: No
  Sender: FDA-Public Use
  Company Number: US-NOVOPROD-957634

PATIENT
  Sex: Female

DRUGS (1)
  1. OZEMPIC [Suspect]
     Active Substance: SEMAGLUTIDE
     Indication: Obesity
     Dosage: 2 MG
     Route: 058
     Dates: start: 20220223

REACTIONS (4)
  - Weight increased [Unknown]
  - Product use in unapproved indication [Unknown]
  - Weight loss poor [Unknown]
  - Drug ineffective [Unknown]
